FAERS Safety Report 9664688 (Version 1)
Quarter: 2013Q4

REPORT INFORMATION
  Report Type: Spontaneous
  Country: IT (occurrence: None)
  Receive Date: 20131031
  Receipt Date: 20131031
  Transmission Date: 20140711
  Serious: Yes (Other)
  Sender: FDA-Public Use
  Company Number: AUR-APL-2013-09061

PATIENT
  Age: 18 Year
  Sex: Male

DRUGS (2)
  1. LEVETIRACETAM [Suspect]
     Indication: LENNOX-GASTAUT SYNDROME
  2. VALPROATE SODIUM [Suspect]
     Indication: LENNOX-GASTAUT SYNDROME

REACTIONS (1)
  - Drug resistance [None]
